FAERS Safety Report 6120273-7 (Version None)
Quarter: 2009Q1

REPORT INFORMATION
  Report Type: 
  Country: None (occurrence: None)
  Receive Date: 20090312
  Receipt Date: 20090305
  Transmission Date: 20090719
  Serious: Yes (Death)
  Sender: FDA-Public Use
  Company Number: 2009AL001304

PATIENT
  Sex: Female

DRUGS (1)
  1. DIGOXIN [Suspect]
     Indication: HEART RATE IRREGULAR
     Dosage: PO
     Route: 048

REACTIONS (9)
  - BRADYCARDIA [None]
  - CARDIAC DISORDER [None]
  - DIZZINESS [None]
  - ECONOMIC PROBLEM [None]
  - HYPOTENSION [None]
  - MENTAL DISORDER [None]
  - MULTIPLE INJURIES [None]
  - PAIN [None]
  - QUALITY OF LIFE DECREASED [None]
